FAERS Safety Report 9295348 (Version 1)
Quarter: 2013Q2

REPORT INFORMATION
  Report Type: Spontaneous
  Country: BR (occurrence: BR)
  Receive Date: 20130517
  Receipt Date: 20130517
  Transmission Date: 20140414
  Serious: Yes (Other)
  Sender: FDA-Public Use
  Company Number: BR-ACCORD-017664

PATIENT
  Age: 64 Year
  Sex: Female
  Weight: 60 kg

DRUGS (7)
  1. DEXAMETHASONE [Concomitant]
     Route: 042
     Dates: start: 20121016, end: 20121016
  2. HYDROCHLOROTHIAZIDE [Concomitant]
     Route: 048
     Dates: start: 20121016, end: 20121016
  3. PACLITAXEL [Suspect]
     Indication: CHEMOTHERAPY
     Route: 042
     Dates: start: 20121016, end: 20121016
  4. RANITIDINE [Concomitant]
     Route: 042
     Dates: start: 20121016, end: 20121016
  5. BISOPROLOL [Concomitant]
     Route: 048
     Dates: start: 20121016, end: 20121016
  6. DIPHENHYDRAMINE [Concomitant]
     Route: 042
     Dates: start: 20121016, end: 20121016
  7. DEXAMETHASONE [Concomitant]
     Route: 048
     Dates: start: 20121016, end: 20121016

REACTIONS (6)
  - Tremor [Recovered/Resolved]
  - Dyspnoea [Recovered/Resolved]
  - Swelling [Recovered/Resolved]
  - Tachycardia [Recovered/Resolved]
  - Swollen tongue [Recovered/Resolved]
  - General physical health deterioration [Recovered/Resolved]
